FAERS Safety Report 8603176-5 (Version None)
Quarter: 2012Q3

REPORT INFORMATION
  Report Type: 
  Country: None (occurrence: None)
  Receive Date: 20120817
  Receipt Date: 20120813
  Transmission Date: 20120928
  Serious: No
  Sender: FDA-Public Use
  Company Number: US-B.I. PHARMACEUTICALS,INC./RIDGEFIELD-2011-BP-21629BP

PATIENT
  Sex: Male

DRUGS (9)
  1. LISINOPRIL [Concomitant]
     Indication: HYPERTENSION
     Dates: start: 20090101
  2. CARVEDILOL [Concomitant]
     Indication: CARDIAC DISORDER
     Dates: start: 20010101
  3. TYLENOL [Concomitant]
     Indication: BACK PAIN
     Dates: start: 20090101
  4. OMEPRAZOLE [Concomitant]
     Indication: GASTROOESOPHAGEAL REFLUX DISEASE
     Dates: start: 20090101
  5. INDAPAMIDE [Concomitant]
     Indication: OEDEMA
     Dates: start: 20090101
  6. IRON [Concomitant]
     Indication: ANAEMIA
     Dates: start: 20090101
  7. VITAMIN D [Concomitant]
     Indication: ROUTINE HEALTH MAINTENANCE
     Dates: start: 20100101
  8. PRADAXA [Suspect]
     Indication: ATRIAL FIBRILLATION
     Dosage: 300 MG
     Route: 048
     Dates: start: 20100101
  9. CRESTOR [Concomitant]
     Indication: BLOOD CHOLESTEROL INCREASED
     Dosage: 20 MG
     Dates: start: 20090101

REACTIONS (4)
  - PRURITUS [None]
  - ABDOMINAL PAIN [None]
  - ANORECTAL DISCOMFORT [None]
  - DYSPNOEA [None]
